FAERS Safety Report 9965440 (Version 1)
Quarter: 2014Q1

REPORT INFORMATION
  Report Type: Report from Study
  Country: US (occurrence: US)
  Receive Date: 20140305
  Receipt Date: 20140305
  Transmission Date: 20141002
  Serious: No
  Sender: FDA-Public Use
  Company Number: US-ABBVIE-13P-163-1125333-00

PATIENT
  Age: 58 Year
  Sex: Female

DRUGS (4)
  1. HUMIRA [Suspect]
     Indication: COLITIS ULCERATIVE
     Dates: start: 20130523
  2. COUMADIN [Concomitant]
     Indication: THROMBOSIS
  3. MEDICATION FOR BONE DENSITY [Concomitant]
     Indication: BONE DISORDER
  4. MEDICATION FOR PANCREAS [Concomitant]
     Indication: PANCREATIC DISORDER

REACTIONS (3)
  - Diarrhoea [Not Recovered/Not Resolved]
  - Nasopharyngitis [Not Recovered/Not Resolved]
  - Paranasal sinus hypersecretion [Not Recovered/Not Resolved]
